FAERS Safety Report 23846617 (Version 1)
Quarter: 2024Q2

REPORT INFORMATION
  Report Type: Spontaneous
  Country: US (occurrence: US)
  Receive Date: 20240513
  Receipt Date: 20240513
  Transmission Date: 20240716
  Serious: Yes (Hospitalization, Other)
  Sender: FDA-Public Use
  Company Number: US-SANOFI-02041138

PATIENT
  Age: 11 Month

DRUGS (1)
  1. DUPIXENT [Suspect]
     Active Substance: DUPILUMAB
     Indication: Dermatitis atopic

REACTIONS (5)
  - Hypoxia [Unknown]
  - Hospitalisation [Unknown]
  - Hypercapnia [Unknown]
  - Dyspnoea [Recovered/Resolved]
  - DiGeorge^s syndrome [Unknown]

NARRATIVE: CASE EVENT DATE: 20240101
